FAERS Safety Report 20059856 (Version 2)
Quarter: 2021Q4

REPORT INFORMATION
  Report Type: Report from Study
  Country: JP (occurrence: JP)
  Receive Date: 20211111
  Receipt Date: 20211116
  Transmission Date: 20220303
  Serious: Yes (Death, Hospitalization, Other)
  Sender: FDA-Public Use
  Company Number: JP-MSD-M2019-16304

PATIENT
  Age: 60 Year
  Sex: Female
  Weight: 44 kg

DRUGS (1)
  1. PEMBROLIZUMAB [Suspect]
     Active Substance: PEMBROLIZUMAB
     Indication: Endometrial cancer stage I
     Dosage: 200 MILLIGRAM, Q3W
     Route: 041
     Dates: start: 20190405, end: 20190717

REACTIONS (7)
  - Cerebral infarction [Unknown]
  - Interstitial lung disease [Recovered/Resolved]
  - Meningitis [Recovered/Resolved]
  - Malignant neoplasm progression [Fatal]
  - Dysarthria [Recovered/Resolved]
  - Drug ineffective [Unknown]
  - Off label use [Unknown]

NARRATIVE: CASE EVENT DATE: 20190520
